FAERS Safety Report 16072331 (Version 1)
Quarter: 2019Q1

REPORT INFORMATION
  Report Type: Spontaneous
  Country: US (occurrence: US)
  Receive Date: 20190314
  Receipt Date: 20190314
  Transmission Date: 20190418
  Serious: No
  Sender: FDA-Public Use
  Company Number: US-ALLERGAN-1903746US

PATIENT
  Age: 67 Year
  Sex: Female

DRUGS (3)
  1. FLUOCINONIDE. [Concomitant]
     Active Substance: FLUOCINONIDE
     Indication: MOUTH ULCERATION
     Dosage: UNK
     Route: 061
  2. CANASA [Suspect]
     Active Substance: MESALAMINE
     Indication: PROCTITIS ULCERATIVE
     Dosage: 1000 MG, QHS
     Route: 054
     Dates: start: 2018
  3. DEXAMETHASONE. [Concomitant]
     Active Substance: DEXAMETHASONE
     Indication: MOUTH ULCERATION
     Dosage: UNK
     Route: 048

REACTIONS (3)
  - Abnormal faeces [Not Recovered/Not Resolved]
  - Incorrect product administration duration [Unknown]
  - Flatulence [Not Recovered/Not Resolved]

NARRATIVE: CASE EVENT DATE: 2018
